FAERS Safety Report 5289434-3 (Version None)
Quarter: 2007Q2

REPORT INFORMATION
  Report Type: 
  Country: None (occurrence: None)
  Receive Date: 20070406
  Receipt Date: 20070327
  Transmission Date: 20071010
  Serious: Yes (Other)
  Sender: FDA-Public Use
  Company Number: PHBS2007US05589

PATIENT
  Age: 56 Year
  Sex: Female

DRUGS (3)
  1. CORTICOSTEROIDS [Suspect]
     Indication: LUNG TRANSPLANT
     Route: 065
  2. CYTOSTATIC AGENT [Suspect]
     Indication: LUNG TRANSPLANT
     Route: 065
  3. CYCLOSPORINE [Suspect]
     Indication: LUNG TRANSPLANT
     Route: 065

REACTIONS (1)
  - OBLITERATIVE BRONCHIOLITIS [None]
